FAERS Safety Report 5155284-1 (Version None)
Quarter: 2006Q4

REPORT INFORMATION
  Report Type: 
  Country: None (occurrence: None)
  Receive Date: 20061121
  Receipt Date: 20061027
  Transmission Date: 20070319
  Serious: Yes (Disabling)
  Sender: FDA-Public Use
  Company Number: JP-AVENTIS-200613376JP

PATIENT
  Age: 64 Year
  Sex: Female

DRUGS (3)
  1. ALLEGRA [Suspect]
     Indication: RHINITIS ALLERGIC
     Route: 048
     Dates: start: 20061010, end: 20061027
  2. ROHYPNOL [Concomitant]
     Dosage: DOSE: 1 TABLETS/DAY
     Route: 048
     Dates: start: 20060301
  3. MERCAZOLE [Concomitant]
     Dosage: DOSE: 1 TABLETS/DAY
     Route: 048
     Dates: start: 20050601

REACTIONS (2)
  - ANOSMIA [None]
  - INTRANASAL PARAESTHESIA [None]
